FAERS Safety Report 6714486-0 (Version None)
Quarter: 2010Q2

REPORT INFORMATION
  Report Type: 
  Country: None (occurrence: None)
  Receive Date: 20100506
  Receipt Date: 20100426
  Transmission Date: 20101027
  Serious: Yes (Other)
  Sender: FDA-Public Use
  Company Number: KP-WATSON-2010-05754

PATIENT
  Age: 38 Year
  Sex: Male

DRUGS (5)
  1. ISONIAZID [Suspect]
     Indication: TUBERCULOSIS
     Dosage: UNK
  2. INFLIXIMAB [Suspect]
     Indication: CROHN'S DISEASE
     Dosage: UNK
  3. RIFAMPICIN [Suspect]
     Indication: TUBERCULOSIS
     Dosage: UNK
  4. PYRAZINAMIDE [Suspect]
     Indication: TUBERCULOSIS
     Dosage: UNK
  5. ETHAMBUTOL [Suspect]
     Indication: TUBERCULOSIS
     Dosage: UNK

REACTIONS (2)
  - LYMPHADENITIS [None]
  - PARADOXICAL DRUG REACTION [None]
